FAERS Safety Report 22678468 (Version 7)
Quarter: 2024Q2

REPORT INFORMATION
  Report Type: Spontaneous
  Country: US (occurrence: US)
  Receive Date: 20230706
  Receipt Date: 20240611
  Transmission Date: 20240715
  Serious: No
  Sender: FDA-Public Use
  Company Number: US-PFIZER INC-PV202300116163

PATIENT
  Age: 73 Year
  Sex: Female

DRUGS (6)
  1. IBRANCE [Suspect]
     Active Substance: PALBOCICLIB
     Indication: Breast cancer metastatic
     Dosage: 100 MG CYCLIC, QD D1-21 Q2D
     Route: 048
  2. IBRANCE [Suspect]
     Active Substance: PALBOCICLIB
     Dosage: 100 MG
  3. IBRANCE [Suspect]
     Active Substance: PALBOCICLIB
     Dosage: 75 MG, CYCLIC (THREE WEEKS OF TAKING THE PILLS AND THEN 1 WEEK OFF)
  4. FULVESTRANT [Concomitant]
     Active Substance: FULVESTRANT
     Indication: Breast cancer metastatic
     Dosage: ONCE EVERY 28 DAYS (ONCE A MONTH)
     Route: 030
  5. ZOMETA [Concomitant]
     Active Substance: ZOLEDRONIC ACID
     Indication: Breast cancer metastatic
     Dosage: ONCE A MONTH
  6. ZOMETA [Concomitant]
     Active Substance: ZOLEDRONIC ACID
     Dosage: ONCE EVERY THREE MONTHS 21 DAYS

REACTIONS (15)
  - Fatigue [Unknown]
  - Laboratory test abnormal [Unknown]
  - Neoplasm progression [Unknown]
  - Feeling abnormal [Unknown]
  - Malaise [Unknown]
  - Headache [Unknown]
  - Discomfort [Unknown]
  - Constipation [Unknown]
  - Immune system disorder [Unknown]
  - Mobility decreased [Unknown]
  - Balance disorder [Unknown]
  - Asthenia [Unknown]
  - Muscular weakness [Unknown]
  - Gait disturbance [Unknown]
  - Off label use [Unknown]
